FAERS Safety Report 7586601-0 (Version None)
Quarter: 2011Q3

REPORT INFORMATION
  Report Type: 
  Country: None (occurrence: None)
  Receive Date: 20110701
  Receipt Date: 20110623
  Transmission Date: 20111222
  Serious: Yes (Hospitalization, Other)
  Sender: FDA-Public Use
  Company Number: US-US-EMD SERONO, INC.-7067316

PATIENT
  Sex: Male

DRUGS (1)
  1. REBIF [Suspect]
     Indication: PRODUCT USED FOR UNKNOWN INDICATION
     Route: 058
     Dates: start: 20100630

REACTIONS (9)
  - DECREASED APPETITE [None]
  - CARDIAC DISORDER [None]
  - CARDIAC VALVE DISEASE [None]
  - HEADACHE [None]
  - HYPERHIDROSIS [None]
  - PYREXIA [None]
  - INFECTIOUS MONONUCLEOSIS [None]
  - HAEMATOCHEZIA [None]
  - HAEMATURIA [None]
